FAERS Safety Report 17866385 (Version 1)
Quarter: 2020Q2

REPORT INFORMATION
  Report Type: Spontaneous
  Country: GB (occurrence: GB)
  Receive Date: 20200605
  Receipt Date: 20200605
  Transmission Date: 20200714
  Serious: Yes (Life-Threatening, Hospitalization, Other)
  Sender: FDA-Public Use
  Company Number: GB-TEVA-2020-GB-1244020

PATIENT
  Age: 72 Year
  Sex: Female
  Weight: 32.7 kg

DRUGS (8)
  1. PREDNISOLONE. [Concomitant]
     Active Substance: PREDNISOLONE
  2. GENTAMICIN. [Concomitant]
     Active Substance: GENTAMICIN
  3. LOPERAMIDE [Concomitant]
     Active Substance: LOPERAMIDE
  4. BISOPROLOL [Concomitant]
     Active Substance: BISOPROLOL
  5. FLUTICASONE PROPIONATE. [Concomitant]
     Active Substance: FLUTICASONE PROPIONATE
  6. WARFARIN [Suspect]
     Active Substance: WARFARIN
     Indication: ATRIAL FIBRILLATION
     Dosage: VARIABLE - NEWLY STARTED (LOW WARFARIN REQUIREMENT)
     Route: 048
  7. CALCIUM GLUCONATE. [Concomitant]
     Active Substance: CALCIUM GLUCONATE
  8. INSULIN [Concomitant]
     Active Substance: INSULIN NOS

REACTIONS (10)
  - Renal failure [Unknown]
  - International normalised ratio increased [Recovered/Resolved]
  - COVID-19 [Unknown]
  - Pyrexia [Unknown]
  - Pulmonary hilar enlargement [Unknown]
  - Blood albumin decreased [Unknown]
  - Cough [Unknown]
  - Diarrhoea [Unknown]
  - Pneumonia [Unknown]
  - Malaise [Unknown]

NARRATIVE: CASE EVENT DATE: 20200322
